FAERS Safety Report 10710514 (Version 1)
Quarter: 2015Q1

REPORT INFORMATION
  Report Type: Spontaneous
  Country: US (occurrence: None)
  Receive Date: 20150112
  Receipt Date: 20150112
  Transmission Date: 20150721
  Serious: Yes (Hospitalization, Other)
  Sender: FDA-Public Use
  Company Number: FK201500021

PATIENT
  Age: 04 Year
  Sex: Female

DRUGS (1)
  1. SODIUM CHLORIDE 0.9% [Suspect]
     Active Substance: SODIUM CHLORIDE
     Indication: NEPHROCALCINOSIS
     Route: 042

REACTIONS (2)
  - Fluid overload [None]
  - Polyuria [None]
